FAERS Safety Report 14833066 (Version 1)
Quarter: 2018Q2

REPORT INFORMATION
  Report Type: Spontaneous
  Country: US (occurrence: US)
  Receive Date: 20180501
  Receipt Date: 20180501
  Transmission Date: 20180711
  Serious: No
  Sender: FDA-Public Use
  Company Number: US-EPIC PHARMA LLC-2017EPC02035

PATIENT
  Age: 76 Year
  Sex: Male
  Weight: 117.91 kg

DRUGS (6)
  1. ALLOPURINOL. [Concomitant]
     Active Substance: ALLOPURINOL
     Dosage: 150 MG, 1X/DAY
  2. PROSTA HERB [Concomitant]
     Dosage: UNK, 1X/DAY
  3. CRANBERRY CAPSULES [Concomitant]
     Dosage: UNK, 1X/DAY
  4. AMLODIPINE [Suspect]
     Active Substance: AMLODIPINE BESYLATE
     Indication: HYPERTENSION
     Dosage: 5 MG, 1X/DAY IN THE MORNING
     Route: 048
     Dates: start: 20171106
  5. AVODART [Concomitant]
     Active Substance: DUTASTERIDE
     Dosage: 0.5 MG, 1X/DAY
  6. ASPIRIN. [Concomitant]
     Active Substance: ASPIRIN
     Dosage: 81 MG, 1X/DAY

REACTIONS (1)
  - Diarrhoea [Recovering/Resolving]

NARRATIVE: CASE EVENT DATE: 20171111
